FAERS Safety Report 20986903 (Version 2)
Quarter: 2022Q2

REPORT INFORMATION
  Report Type: Spontaneous
  Country: US (occurrence: US)
  Receive Date: 20220621
  Receipt Date: 20220622
  Transmission Date: 20220721
  Serious: Yes (Other)
  Sender: FDA-Public Use
  Company Number: US-PFIZER INC-202200851187

PATIENT
  Age: 79 Year
  Sex: Female

DRUGS (2)
  1. SKELAXIN [Suspect]
     Active Substance: METAXALONE
     Dosage: UNK
  2. TOVIAZ [Concomitant]
     Active Substance: FESOTERODINE FUMARATE
     Dosage: UNK

REACTIONS (6)
  - Knee arthroplasty [Unknown]
  - Bone operation [Unknown]
  - Fibromyalgia [Unknown]
  - Intervertebral disc degeneration [Unknown]
  - Osteoporosis [Unknown]
  - Osteoarthritis [Unknown]
